FAERS Safety Report 14781472 (Version 1)
Quarter: 2018Q2

REPORT INFORMATION
  Report Type: Spontaneous
  Country: CA (occurrence: CA)
  Receive Date: 20180419
  Receipt Date: 20180419
  Transmission Date: 20180711
  Serious: Yes (Other)
  Sender: FDA-Public Use
  Company Number: CA-TEVA-2018-CA-882823

PATIENT
  Age: 28 Year
  Sex: Female

DRUGS (7)
  1. BROMAZEPAM [Concomitant]
     Active Substance: BROMAZEPAM
  2. MELATONIN [Concomitant]
     Active Substance: MELATONIN
  3. VITAMIN D [Concomitant]
     Active Substance: CHOLECALCIFEROL
  4. VITAMIN B12 [Concomitant]
     Active Substance: CYANOCOBALAMIN
  5. IRON [Concomitant]
     Active Substance: IRON
  6. ONDANSETRON [Concomitant]
     Active Substance: ONDANSETRON
  7. MOCLOBEMIDE [Suspect]
     Active Substance: MOCLOBEMIDE
     Route: 065

REACTIONS (2)
  - Suicidal ideation [Unknown]
  - Mood altered [Unknown]
